FAERS Safety Report 4981354-4 (Version None)
Quarter: 2006Q2

REPORT INFORMATION
  Report Type: 
  Country: None (occurrence: None)
  Receive Date: 20060424
  Receipt Date: 20050606
  Transmission Date: 20061013
  Serious: Yes (Death, Disabling)
  Sender: FDA-Public Use
  Company Number: US-MERCK-0506USA01029

PATIENT
  Age: 38 Year
  Sex: Male
  Weight: 121 kg

DRUGS (3)
  1. VIOXX [Suspect]
     Indication: ARTHRALGIA
     Route: 048
     Dates: start: 19990101, end: 20030529
  2. VIOXX [Suspect]
     Route: 048
     Dates: start: 19990101, end: 20030529
  3. ALEVE [Concomitant]
     Route: 065

REACTIONS (6)
  - ARTHROPATHY [None]
  - HEPATOMEGALY [None]
  - HYPERTROPHIC CARDIOMYOPATHY [None]
  - LOSS OF CONSCIOUSNESS [None]
  - SPLENOMEGALY [None]
  - SUDDEN CARDIAC DEATH [None]
